FAERS Safety Report 5308889-9 (Version None)
Quarter: 2007Q2

REPORT INFORMATION
  Report Type: 
  Country: None (occurrence: None)
  Receive Date: 20070426
  Receipt Date: 20070423
  Transmission Date: 20071010
  Serious: Yes (Death)
  Sender: FDA-Public Use
  Company Number: US-PFIZER INC-2004070516

PATIENT
  Age: 20 Year

DRUGS (4)
  1. HYDROXYZINE HYDROCHLORIDE [Suspect]
     Indication: ILL-DEFINED DISORDER
     Route: 048
  2. OLANZAPINE [Suspect]
     Indication: ILL-DEFINED DISORDER
     Route: 048
  3. TRIAMTERIL COMP [Suspect]
     Indication: ILL-DEFINED DISORDER
     Route: 048
  4. ALL OTHER THERAPEUTIC PRODUCTS [Suspect]
     Indication: ILL-DEFINED DISORDER
     Route: 048

REACTIONS (1)
  - COMPLETED SUICIDE [None]
